FAERS Safety Report 12791053 (Version 5)
Quarter: 2016Q4

REPORT INFORMATION
  Report Type: Spontaneous
  Country: US (occurrence: US)
  Receive Date: 20160929
  Receipt Date: 20161213
  Transmission Date: 20170207
  Serious: No
  Sender: FDA-Public Use
  Company Number: US-PFIZER INC-2016454353

PATIENT
  Age: 56 Year
  Sex: Female

DRUGS (3)
  1. LYRICA [Suspect]
     Active Substance: PREGABALIN
     Indication: TYPE 2 DIABETES MELLITUS
     Dosage: 100 MG, 3X/DAY
     Route: 048
  2. LYRICA [Suspect]
     Active Substance: PREGABALIN
     Indication: NEURALGIA
     Dosage: UNK MG, UNK
     Dates: start: 201512, end: 201512
  3. LYRICA [Suspect]
     Active Substance: PREGABALIN
     Indication: DIABETIC AUTONOMIC NEUROPATHY

REACTIONS (4)
  - Euphoric mood [Unknown]
  - Nightmare [Unknown]
  - Condition aggravated [Unknown]
  - Pain [Unknown]
